FAERS Safety Report 21906892 (Version 1)
Quarter: 2023Q1

REPORT INFORMATION
  Report Type: Spontaneous
  Country: US (occurrence: US)
  Receive Date: 20230125
  Receipt Date: 20230125
  Transmission Date: 20230417
  Serious: No
  Sender: FDA-Public Use
  Company Number: US-TEVA-2023-US-2844933

PATIENT
  Age: 62 Year
  Sex: Female

DRUGS (1)
  1. RISEDRONATE SODIUM [Suspect]
     Active Substance: RISEDRONATE SODIUM
     Indication: Osteoporosis
     Dosage: 5 MILLIGRAM DAILY; 150 MG,ONCE A MONTH
     Route: 065
     Dates: start: 2020

REACTIONS (1)
  - Osteopenia [Unknown]
